FAERS Safety Report 8835942 (Version 6)
Quarter: 2014Q2

REPORT INFORMATION
  Report Type: Report from Study
  Country: JP (occurrence: JP)
  Receive Date: 20121011
  Receipt Date: 20140515
  Transmission Date: 20141212
  Serious: Yes (Disabling, Other)
  Sender: FDA-Public Use
  Company Number: JP-VERTEX PHARMACEUTICAL INC.-AE-2012-008472

PATIENT
  Age: 51 Year
  Sex: Female

DRUGS (12)
  1. VX-950 (TELAPREVIR) [Suspect]
     Indication: CHRONIC HEPATITIS C
     Dosage: 1500 MG, QD
     Route: 048
     Dates: start: 20120405, end: 20120518
  2. REBETOL [Suspect]
     Indication: CHRONIC HEPATITIS C
     Dosage: 600 MG, QD
     Route: 048
     Dates: start: 20120405, end: 20120515
  3. REBETOL [Suspect]
     Dosage: 400 MG, QD
     Route: 048
     Dates: start: 20120516, end: 20120518
  4. REBETOL [Suspect]
     Dosage: 400 MG, QD
     Route: 048
     Dates: start: 20120606, end: 20120918
  5. PEGINTRON [Suspect]
     Indication: CHRONIC HEPATITIS C
     Dosage: 1.6 ?G/KG, QW
     Route: 058
     Dates: start: 20120405, end: 20120518
  6. PEGINTRON [Suspect]
     Dosage: 1.65 ?G/KG, QW
     Route: 058
     Dates: end: 20120912
  7. THYRADIN S [Concomitant]
     Dosage: 12.5 ?G, QD
     Route: 048
  8. THYRADIN S [Concomitant]
     Dosage: 25 ?G, QD
     Route: 048
     Dates: start: 20120425
  9. THYRADIN S [Concomitant]
     Dosage: 50 ?G, QD
     Route: 048
     Dates: start: 20120523
  10. THYRADIN S [Concomitant]
     Dosage: 75 ?G, QD
     Route: 048
     Dates: start: 20120620
  11. GASTER D [Concomitant]
     Dosage: 20 MG, QD
     Route: 048
     Dates: start: 20120606, end: 20120620
  12. BRONUCK [Concomitant]
     Dosage: 5 ML/BOTTLE QD
     Route: 047
     Dates: start: 20120829

REACTIONS (3)
  - Erythema multiforme [Recovered/Resolved]
  - Erythema [Recovered/Resolved]
  - Retinopathy [Recovered/Resolved]
